FAERS Safety Report 26157859 (Version 1)
Quarter: 2025Q4

REPORT INFORMATION
  Report Type: Spontaneous
  Country: US (occurrence: US)
  Receive Date: 20251215
  Receipt Date: 20251215
  Transmission Date: 20260117
  Serious: Yes (Hospitalization)
  Sender: MYLAN
  Company Number: US-MYLANLABS-2025M1105333

PATIENT
  Age: 72 Year
  Sex: Male

DRUGS (4)
  1. GABAPENTIN [Suspect]
     Active Substance: GABAPENTIN
     Indication: Meralgia paraesthetica
     Dosage: 300 MILLIGRAM, TID
  2. LIDOCAINE [Suspect]
     Active Substance: LIDOCAINE
     Indication: Meralgia paraesthetica
     Dosage: UNK, QD
  3. CAPSAICIN [Suspect]
     Active Substance: CAPSAICIN
     Indication: Meralgia paraesthetica
     Dosage: UNK, 3-4 TIMES DAILY
  4. OXYCODONE [Suspect]
     Active Substance: OXYCODONE
     Indication: Meralgia paraesthetica
     Dosage: 5 MILLIGRAM,  UP TO THREE TIMES DAILY AS NEEDED

REACTIONS (1)
  - Drug ineffective [Unknown]
